FAERS Safety Report 19893354 (Version 1)
Quarter: 2021Q3

REPORT INFORMATION
  Report Type: Spontaneous
  Country: US (occurrence: US)
  Receive Date: 20210928
  Receipt Date: 20210928
  Transmission Date: 20211014
  Serious: No
  Sender: FDA-Public Use
  Company Number: US-SA-2021SA315458

PATIENT
  Sex: Female

DRUGS (11)
  1. XELJANZ [Concomitant]
     Active Substance: TOFACITINIB CITRATE
  2. HUMIRA [Concomitant]
     Active Substance: ADALIMUMAB
  3. ORENCIA [Concomitant]
     Active Substance: ABATACEPT
  4. PLAQUENIL [Concomitant]
     Active Substance: HYDROXYCHLOROQUINE SULFATE
  5. CIMZIA [Concomitant]
     Active Substance: CERTOLIZUMAB PEGOL
  6. ACTEMRA [Concomitant]
     Active Substance: TOCILIZUMAB
     Route: 058
  7. IMURAN [Concomitant]
     Active Substance: AZATHIOPRINE
  8. COSENTYX [Concomitant]
     Active Substance: SECUKINUMAB
  9. REMICADE [Concomitant]
     Active Substance: INFLIXIMAB
  10. RITUXAN [Concomitant]
     Active Substance: RITUXIMAB
  11. ARAVA [Suspect]
     Active Substance: LEFLUNOMIDE

REACTIONS (1)
  - Treatment failure [Unknown]
